FAERS Safety Report 18217080 (Version 1)
Quarter: 2020Q3

REPORT INFORMATION
  Report Type: Spontaneous
  Country: US (occurrence: US)
  Receive Date: 20200901
  Receipt Date: 20200901
  Transmission Date: 20201103
  Serious: Yes (Hospitalization, Other)
  Sender: FDA-Public Use
  Company Number: US-BAYER-2020-181206

PATIENT
  Age: 67 Year
  Sex: Female

DRUGS (2)
  1. CIPROFLOXACIN. [Suspect]
     Active Substance: CIPROFLOXACIN
     Indication: PNEUMONIA PSEUDOMONAL
  2. CELEBREX [Interacting]
     Active Substance: CELECOXIB
     Dosage: 200 MG, BID

REACTIONS (5)
  - Neuropathy peripheral [Recovering/Resolving]
  - Incorrect product administration duration [None]
  - Drug interaction [None]
  - Paraesthesia [Recovering/Resolving]
  - Muscular weakness [Recovering/Resolving]
